FAERS Safety Report 12101019 (Version 5)
Quarter: 2016Q4

REPORT INFORMATION
  Report Type: Report from Study
  Country: US (occurrence: US)
  Receive Date: 20160222
  Receipt Date: 20161129
  Transmission Date: 20170206
  Serious: Yes (Hospitalization)
  Sender: FDA-Public Use
  Company Number: US-ACTELION-A-US2016-131604

PATIENT
  Age: 6 Year
  Sex: Female

DRUGS (3)
  1. TRACLEER [Suspect]
     Active Substance: BOSENTAN
     Indication: PULMONARY HYPERTENSION
     Dosage: 31.25 MG, BID
     Route: 048
     Dates: start: 20150204
  2. TRACLEER [Suspect]
     Active Substance: BOSENTAN
     Dosage: 125 MG, BID
     Route: 048
  3. COUMADIN [Concomitant]
     Active Substance: WARFARIN SODIUM

REACTIONS (11)
  - Ear tube insertion [Unknown]
  - Sinus congestion [Unknown]
  - Tympanoplasty [Unknown]
  - Ear infection [Unknown]
  - Influenza [Unknown]
  - Oxygen saturation decreased [Unknown]
  - Respiratory rate increased [Unknown]
  - Gastrostomy tube removal [Unknown]
  - Dehydration [Unknown]
  - Pyrexia [Unknown]
  - Nasopharyngitis [Unknown]

NARRATIVE: CASE EVENT DATE: 201601
